FAERS Safety Report 10470305 (Version 9)
Quarter: 2015Q3

REPORT INFORMATION
  Report Type: Report from Study
  Country: US (occurrence: US)
  Receive Date: 20140923
  Receipt Date: 20150803
  Transmission Date: 20151125
  Serious: Yes (Other)
  Sender: FDA-Public Use
  Company Number: US-SA-2013SA100418

PATIENT
  Age: 36 Year
  Sex: Male

DRUGS (3)
  1. AUBAGIO [Suspect]
     Active Substance: TERIFLUNOMIDE
     Indication: MULTIPLE SCLEROSIS
     Dosage: TAKEN FROM : ABOUT 2 WEEKS AGO
     Route: 048
     Dates: start: 20130917
  2. AUBAGIO [Suspect]
     Active Substance: TERIFLUNOMIDE
     Indication: MULTIPLE SCLEROSIS
     Dosage: TAKEN FROM : ABOUT 2 WEEKS AGO
     Route: 048
     Dates: start: 20131002
  3. STRIBILD [Concomitant]
     Active Substance: COBICISTAT\ELVITEGRAVIR\EMTRICITABINE\TENOFOVIR DISOPROXIL FUMARATE

REACTIONS (34)
  - Musculoskeletal stiffness [Unknown]
  - Gait disturbance [Unknown]
  - Injury [Unknown]
  - Decreased appetite [Unknown]
  - Weight decreased [Unknown]
  - Abasia [Not Recovered/Not Resolved]
  - Rhabdomyolysis [Unknown]
  - Enuresis [Unknown]
  - Scab [Recovered/Resolved]
  - Chromaturia [Unknown]
  - Hypoaesthesia [Unknown]
  - White matter lesion [Unknown]
  - Blood creatine phosphokinase increased [Unknown]
  - Pain [Unknown]
  - Activities of daily living impaired [Unknown]
  - Wound [Recovered/Resolved]
  - Central nervous system lesion [Unknown]
  - Urinary incontinence [Unknown]
  - Vomiting [Unknown]
  - Paraesthesia [Unknown]
  - Loss of consciousness [Not Recovered/Not Resolved]
  - Multiple sclerosis relapse [Not Recovered/Not Resolved]
  - Optic neuritis [Not Recovered/Not Resolved]
  - Fall [Unknown]
  - Erythema [Recovered/Resolved]
  - Nerve injury [Unknown]
  - Hypokinesia [Unknown]
  - Fall [Unknown]
  - Head injury [Not Recovered/Not Resolved]
  - Joint injury [Unknown]
  - Abdominal pain upper [Unknown]
  - Impaired healing [Unknown]
  - Muscular weakness [Unknown]
  - Ligament rupture [Unknown]

NARRATIVE: CASE EVENT DATE: 2014
